FAERS Safety Report 22643485 (Version 1)
Quarter: 2023Q2

REPORT INFORMATION
  Report Type: Report from Study
  Country: US (occurrence: US)
  Receive Date: 20230627
  Receipt Date: 20230627
  Transmission Date: 20230722
  Serious: Yes (Hospitalization)
  Sender: FDA-Public Use
  Company Number: US-ABBVIE-5304924

PATIENT
  Age: 73 Year
  Sex: Male

DRUGS (1)
  1. SKYRIZI [Suspect]
     Active Substance: RISANKIZUMAB-RZAA
     Indication: Psoriasis
     Route: 058

REACTIONS (6)
  - Cystitis [Recovering/Resolving]
  - Pneumonia [Unknown]
  - Liver function test increased [Unknown]
  - Feeling abnormal [Unknown]
  - Chills [Unknown]
  - Psoriasis [Unknown]

NARRATIVE: CASE EVENT DATE: 20230424
